FAERS Safety Report 6875219-0 (Version None)
Quarter: 2010Q3

REPORT INFORMATION
  Report Type: 
  Country: None (occurrence: None)
  Receive Date: 20100727
  Receipt Date: 20100713
  Transmission Date: 20110219
  Serious: Yes (Other)
  Sender: FDA-Public Use
  Company Number: US-JNJFOC-20100706204

PATIENT
  Age: 47 Year
  Sex: Male

DRUGS (3)
  1. GALANTAMINE HYDROBROMIDE [Suspect]
     Indication: SCHIZOPHRENIA
     Dosage: IN 2 DIVIDED DOSES WITH 8,16 AND 24 MG/DAY ON WEEKS 2,3 AND 4 RESPECTIVELY
     Route: 065
  2. RISPERIDONE [Suspect]
     Indication: SCHIZOPHRENIA
     Route: 065
  3. CITICOLINE [Suspect]
     Indication: SCHIZOPHRENIA
     Dosage: IN 2 DIVIDED DOSES BEGINNING ON WEEK 2
     Route: 065

REACTIONS (14)
  - ABDOMINAL DISCOMFORT [None]
  - BLOOD PRESSURE INCREASED [None]
  - DIARRHOEA [None]
  - HEADACHE [None]
  - HEART RATE INCREASED [None]
  - HYPERHIDROSIS [None]
  - INAPPROPRIATE SCHEDULE OF DRUG ADMINISTRATION [None]
  - INCREASED APPETITE [None]
  - INSOMNIA [None]
  - MALAISE [None]
  - OFF LABEL USE [None]
  - PYREXIA [None]
  - RESTLESSNESS [None]
  - SYNCOPE [None]
